FAERS Safety Report 9925612 (Version 2)
Quarter: 2014Q2

REPORT INFORMATION
  Report Type: Report from Study
  Country: GB (occurrence: GB)
  Receive Date: 20140226
  Receipt Date: 20140423
  Transmission Date: 20141212
  Serious: Yes (Hospitalization)
  Sender: FDA-Public Use
  Company Number: GB-TEVA-464638ISR

PATIENT
  Age: 26 Year
  Sex: Female

DRUGS (2)
  1. COPAXONE [Suspect]
     Indication: PRODUCT USED FOR UNKNOWN INDICATION
     Dosage: 20 MILLIGRAM DAILY;
     Route: 058
  2. AMITRIPTYLINE [Suspect]
     Dosage: 32 TABLET DAILY;
     Route: 065

REACTIONS (1)
  - Overdose [Recovered/Resolved]
